FAERS Safety Report 4700244-5 (Version None)
Quarter: 2005Q2

REPORT INFORMATION
  Report Type: 
  Country: None (occurrence: None)
  Receive Date: 20050627
  Receipt Date: 20050620
  Transmission Date: 20051028
  Serious: No
  Sender: FDA-Public Use
  Company Number: ES-JNJFOC-20050505167

PATIENT
  Sex: Male

DRUGS (1)
  1. CONCERTA [Suspect]
     Route: 049

REACTIONS (1)
  - SLEEP TERROR [None]
